FAERS Safety Report 11072291 (Version 1)
Quarter: 2015Q2

REPORT INFORMATION
  Report Type: Spontaneous
  Country: US (occurrence: None)
  Receive Date: 20150427
  Receipt Date: 20150427
  Transmission Date: 20150821
  Serious: Yes (Disabling)
  Sender: FDA-Public Use
  Company Number: None

PATIENT
  Age: 54 Year
  Sex: Female
  Weight: 65.77 kg

DRUGS (13)
  1. FUROSEMIDE. [Concomitant]
     Active Substance: FUROSEMIDE
  2. METOPROLOL SUCCER [Concomitant]
  3. KLOR-CON M [Concomitant]
     Active Substance: POTASSIUM CHLORIDE
  4. FISH OIL [Concomitant]
     Active Substance: FISH OIL
  5. MULTIVITAMIN ONE A DAY WOMEN^S FORMULA CALCIUM [Concomitant]
  6. OMEPRAZOL [Concomitant]
     Active Substance: OMEPRAZOLE
  7. TIKOSYN [Concomitant]
     Active Substance: DOFETILIDE
  8. D MUCINEX [Concomitant]
  9. LEVOTHYROXINE [Concomitant]
     Active Substance: LEVOTHYROXINE
  10. LISINOPRIL. [Concomitant]
     Active Substance: LISINOPRIL
  11. AMIODARONE 200 MG TEVA [Suspect]
     Active Substance: AMIODARONE
     Indication: ARRHYTHMIA
     Dosage: 1
     Route: 048
     Dates: start: 20131022, end: 20140430
  12. ATORVASTATIN [Concomitant]
     Active Substance: ATORVASTATIN
  13. WARFARIN SODIUM. [Concomitant]
     Active Substance: WARFARIN SODIUM

REACTIONS (2)
  - Visual acuity reduced [None]
  - Blindness [None]

NARRATIVE: CASE EVENT DATE: 20150424
